FAERS Safety Report 24068179 (Version 1)
Quarter: 2024Q3

REPORT INFORMATION
  Report Type: Spontaneous
  Country: US (occurrence: US)
  Receive Date: 20240710
  Receipt Date: 20240710
  Transmission Date: 20241017
  Serious: No
  Sender: MERCK
  Company Number: US-009507513-2406USA003945

PATIENT
  Sex: Female

DRUGS (22)
  1. JANUVIA [Suspect]
     Active Substance: SITAGLIPTIN PHOSPHATE
     Indication: Type 2 diabetes mellitus
     Dosage: UNK
     Route: 048
     Dates: start: 202102, end: 202103
  2. TOPAMAX [Concomitant]
     Active Substance: TOPIRAMATE
  3. TRAMADOL [Concomitant]
     Active Substance: TRAMADOL\TRAMADOL HYDROCHLORIDE
  4. VITAMIN B12 [Concomitant]
     Active Substance: CYANOCOBALAMIN
  5. VITAMIN D3 [Concomitant]
     Active Substance: CHOLECALCIFEROL
  6. VITAMIN C [Concomitant]
     Active Substance: ASCORBIC ACID
  7. MAGNESIUM OXIDE [Concomitant]
     Active Substance: MAGNESIUM OXIDE
  8. LISINOPRIL [Concomitant]
     Active Substance: LISINOPRIL
  9. JARDIANCE [Concomitant]
     Active Substance: EMPAGLIFLOZIN
  10. GABAPENTIN [Concomitant]
     Active Substance: GABAPENTIN
  11. ASPIRIN [Concomitant]
     Active Substance: ASPIRIN
  12. MODAFINIL [Concomitant]
     Active Substance: MODAFINIL
  13. PROZAC [Concomitant]
     Active Substance: FLUOXETINE HYDROCHLORIDE
  14. BACLOFEN [Concomitant]
     Active Substance: BACLOFEN
  15. TRULICITY [Concomitant]
     Active Substance: DULAGLUTIDE
  16. GLIPIZIDE [Concomitant]
     Active Substance: GLIPIZIDE
  17. LYRICA [Concomitant]
     Active Substance: PREGABALIN
  18. OMEPRAZOLE [Concomitant]
     Active Substance: OMEPRAZOLE
  19. SOLU-MEDROL [Concomitant]
     Active Substance: METHYLPREDNISOLONE SODIUM SUCCINATE
  20. TYLENOL [Concomitant]
     Active Substance: ACETAMINOPHEN
  21. ZYRTEC [Concomitant]
     Active Substance: CETIRIZINE HYDROCHLORIDE
  22. TORADOL [Concomitant]
     Active Substance: KETOROLAC TROMETHAMINE

REACTIONS (1)
  - Diarrhoea [Recovered/Resolved]

NARRATIVE: CASE EVENT DATE: 20210101
